FAERS Safety Report 6803749-6 (Version None)
Quarter: 2010Q2

REPORT INFORMATION
  Report Type: 
  Country: None (occurrence: None)
  Receive Date: 20100628
  Receipt Date: 20100616
  Transmission Date: 20101027
  Serious: Yes (Death, Life-Threatening, Hospitalization)
  Sender: FDA-Public Use
  Company Number: US-GENZYME-CLOF-1000363

PATIENT
  Sex: Male
  Weight: 81.6 kg

DRUGS (1)
  1. CLOFARABINE [Suspect]
     Indication: MYELODYSPLASTIC SYNDROME
     Dosage: 35 MG, QDX5
     Route: 048
     Dates: start: 20081117, end: 20081121

REACTIONS (1)
  - FUNGAL INFECTION [None]
